FAERS Safety Report 19812952 (Version 1)
Quarter: 2021Q3

REPORT INFORMATION
  Report Type: Spontaneous
  Country: US (occurrence: US)
  Receive Date: 20210909
  Receipt Date: 20210909
  Transmission Date: 20211014
  Serious: No
  Sender: FDA-Public Use
  Company Number: US-PERRIGO-20US013893

PATIENT
  Age: 62 Year
  Sex: Female
  Weight: 53.52 kg

DRUGS (2)
  1. CLOBETASOL [Suspect]
     Active Substance: CLOBETASOL
     Indication: SEBORRHOEIC DERMATITIS
     Dosage: 1 APPLICATION, 1 TO 2 TIMES DAILY
     Route: 061
     Dates: start: 20200905, end: 20200921
  2. MINOXIDIL. [Suspect]
     Active Substance: MINOXIDIL
     Indication: ALOPECIA
     Dosage: 1 ML, BID
     Route: 061
     Dates: start: 20200827, end: 20200921

REACTIONS (3)
  - Wrong technique in product usage process [Recovered/Resolved]
  - Blister [Not Recovered/Not Resolved]
  - Oedema peripheral [Recovering/Resolving]

NARRATIVE: CASE EVENT DATE: 20200905
